FAERS Safety Report 6409439-6 (Version None)
Quarter: 2009Q4

REPORT INFORMATION
  Report Type: 
  Country: None (occurrence: None)
  Receive Date: 20091019
  Receipt Date: 20091019
  Transmission Date: 20100525
  Serious: No
  Sender: FDA-Public Use
  Company Number: None

PATIENT
  Age: 57 Year
  Sex: Male
  Weight: 88.4514 kg

DRUGS (2)
  1. LIPITOR [Suspect]
  2. CRESTOR [Suspect]

REACTIONS (4)
  - BLOOD CREATINE PHOSPHOKINASE INCREASED [None]
  - DRUG INEFFECTIVE [None]
  - MUSCLE NECROSIS [None]
  - MUSCULAR WEAKNESS [None]
